FAERS Safety Report 15444692 (Version 1)
Quarter: 2018Q3

REPORT INFORMATION
  Report Type: Spontaneous
  Country: US (occurrence: US)
  Receive Date: 20180928
  Receipt Date: 20180928
  Transmission Date: 20181010
  Serious: No
  Sender: FDA-Public Use
  Company Number: US-AMGEN-USASP2018046424

PATIENT
  Age: 71 Year
  Sex: Female

DRUGS (1)
  1. PROLIA [Suspect]
     Active Substance: DENOSUMAB
     Indication: OSTEOPOROSIS POSTMENOPAUSAL
     Dosage: UNK
     Route: 065
     Dates: start: 20180315

REACTIONS (5)
  - White blood cells urine positive [Unknown]
  - Hepatic enzyme increased [Unknown]
  - Tetany [Unknown]
  - Pain in jaw [Unknown]
  - Blood urine present [Unknown]

NARRATIVE: CASE EVENT DATE: 20180401
